FAERS Safety Report 6385351-6 (Version None)
Quarter: 2009Q4

REPORT INFORMATION
  Report Type: 
  Country: None (occurrence: None)
  Receive Date: 20091002
  Receipt Date: 20080813
  Transmission Date: 20100525
  Serious: No
  Sender: FDA-Public Use
  Company Number: US-ASTRAZENECA-2008UW16568

PATIENT
  Age: 67 Year
  Sex: Female
  Weight: 88.5 kg

DRUGS (6)
  1. ARIMIDEX [Suspect]
     Indication: BREAST CANCER FEMALE
     Route: 048
  2. FLONASE [Concomitant]
  3. IBUPROFEN [Concomitant]
  4. OMEPRAZOLE [Concomitant]
     Route: 048
  5. TYLENOL (CAPLET) [Concomitant]
  6. M.V.I. [Concomitant]

REACTIONS (3)
  - ABDOMINAL DISTENSION [None]
  - ARTHRITIS [None]
  - TERMINAL INSOMNIA [None]
